FAERS Safety Report 15440486 (Version 1)
Quarter: 2018Q3

REPORT INFORMATION
  Report Type: Report from Study
  Country: US (occurrence: US)
  Receive Date: 20180928
  Receipt Date: 20180928
  Transmission Date: 20181010
  Serious: Yes (Hospitalization)
  Sender: FDA-Public Use
  Company Number: US-BAYER-2018-178215

PATIENT
  Age: 63 Year
  Sex: Male
  Weight: 65.76 kg

DRUGS (3)
  1. STIVARGA [Suspect]
     Active Substance: REGORAFENIB
     Indication: APPENDIX CANCER
     Dosage: 160 MG DAILY FOR 21 DAYS
     Route: 048
     Dates: start: 20180910
  2. PROBIOTICA [Concomitant]
     Active Substance: PROBIOTICS NOS
  3. TYLENOL [Concomitant]
     Active Substance: ACETAMINOPHEN

REACTIONS (4)
  - Off label use [None]
  - Drug dose omission [None]
  - Appendix cancer [Unknown]
  - Product use in unapproved indication [None]

NARRATIVE: CASE EVENT DATE: 201809
